FAERS Safety Report 9516520 (Version 1)
Quarter: 2013Q3

REPORT INFORMATION
  Report Type: Spontaneous
  Country: US (occurrence: None)
  Receive Date: 20130910
  Receipt Date: 20130910
  Transmission Date: 20140515
  Serious: Yes (Death)
  Sender: FDA-Public Use
  Company Number: None

PATIENT
  Age: 69 Year
  Sex: Female

DRUGS (1)
  1. ACTHAR HP [Suspect]
     Indication: NEPHROTIC SYNDROME
     Route: 058
     Dates: start: 20130426, end: 20130829

REACTIONS (2)
  - Sepsis [None]
  - Cellulitis [None]
